FAERS Safety Report 6429562-X (Version None)
Quarter: 2009Q4

REPORT INFORMATION
  Report Type: 
  Country: None (occurrence: None)
  Receive Date: 20091103
  Receipt Date: 20091022
  Transmission Date: 20100525
  Serious: Yes (Hospitalization)
  Sender: FDA-Public Use
  Company Number: 234749K09USA

PATIENT
  Age: 42 Year
  Sex: Female
  Weight: 66 kg

DRUGS (7)
  1. REBIF [Suspect]
     Indication: MULTIPLE SCLEROSIS
     Dosage: 44 MCG, 3 IN 1 WEEKS, SUBCUTANEOUS
     Route: 058
     Dates: start: 20070329, end: 20090406
  2. REBIF [Suspect]
     Indication: MULTIPLE SCLEROSIS
     Dosage: 44 MCG, 3 IN 1 WEEKS, SUBCUTANEOUS
     Route: 058
     Dates: start: 20090101
  3. IBUPROFEN [Concomitant]
  4. PROVIGIL [Concomitant]
  5. VITAMIN D [Concomitant]
  6. RANITIDINE(RANITIDINE  /00550801/) [Concomitant]
  7. TYLENOL [Concomitant]

REACTIONS (1)
  - BREAST CANCER IN SITU [None]
